FAERS Safety Report 18699629 (Version 2)
Quarter: 2021Q1

REPORT INFORMATION
  Report Type: Spontaneous
  Country: TR (occurrence: TR)
  Receive Date: 20210105
  Receipt Date: 20210111
  Transmission Date: 20210419
  Serious: Yes (Other)
  Sender: FDA-Public Use
  Company Number: TR-CHEPLA-C20204029_02

PATIENT
  Age: 6 Month
  Sex: Female

DRUGS (5)
  1. FOSCARNET [Concomitant]
     Active Substance: FOSCARNET
  2. CYCLOSPORIN A [Concomitant]
     Active Substance: CYCLOSPORINE
  3. GANCICLOVIR. [Suspect]
     Active Substance: GANCICLOVIR
     Indication: CYTOMEGALOVIRUS INFECTION
     Dosage: FIRST THREE DOSES ADMINISTERED EVERY THREE DAYS AND ADDITIONAL ONE DOSE AFTER A WEEK OF THE LAST ...
  4. GANCICLOVIR. [Suspect]
     Active Substance: GANCICLOVIR
     Indication: CYTOMEGALOVIRUS INFECTION
     Route: 065
  5. INTRAVENOUS IMMUNOGLOBULINS [Concomitant]
     Active Substance: HUMAN IMMUNOGLOBULIN G

REACTIONS (3)
  - Product use issue [Unknown]
  - Retinitis [Recovered/Resolved]
  - Drug ineffective [Unknown]
